FAERS Safety Report 5103426-6 (Version None)
Quarter: 2006Q3

REPORT INFORMATION
  Report Type: 
  Country: None (occurrence: None)
  Receive Date: 20060908
  Receipt Date: 20060829
  Transmission Date: 20061208
  Serious: Yes (Hospitalization)
  Sender: FDA-Public Use
  Company Number: B0436960A

PATIENT
  Age: 15 Year
  Sex: Male

DRUGS (1)
  1. RELAFEN [Suspect]
     Indication: MYALGIA

REACTIONS (2)
  - HYPOTENSION [None]
  - STEVENS-JOHNSON SYNDROME [None]
